FAERS Safety Report 9237424 (Version 1)
Quarter: 2013Q2

REPORT INFORMATION
  Report Type: Spontaneous
  Country: US (occurrence: US)
  Receive Date: 20130417
  Receipt Date: 20130417
  Transmission Date: 20140414
  Serious: No
  Sender: FDA-Public Use
  Company Number: US-UPSHER-SMITH LABORATORIES, INC.-13001320

PATIENT
  Age: 64 Year
  Sex: Female

DRUGS (6)
  1. DIVIGEL [Suspect]
     Indication: HOT FLUSH
     Dosage: 1.0 MG, QD
     Route: 061
     Dates: start: 201301, end: 201304
  2. PROVERA                            /00115201/ [Concomitant]
     Dosage: UNK
  3. LEVOTHYROXINE [Concomitant]
     Dosage: UNK
  4. FENOFIBRATE [Concomitant]
     Dosage: UNK
  5. OMEPRAZOLE [Concomitant]
     Dosage: UNK
  6. EFFEXOR                            /01233801/ [Concomitant]
     Dosage: UNK

REACTIONS (2)
  - Acne [Recovering/Resolving]
  - Abdominal distension [Not Recovered/Not Resolved]
